FAERS Safety Report 25047932 (Version 1)
Quarter: 2025Q1

REPORT INFORMATION
  Report Type: Spontaneous
  Country: SK (occurrence: SK)
  Receive Date: 20250306
  Receipt Date: 20250306
  Transmission Date: 20250409
  Serious: Yes (Death, Hospitalization, Other)
  Sender: JOHNSON AND JOHNSON
  Company Number: SK-BAYER-2025A031018

PATIENT
  Age: 73 Year
  Sex: Male

DRUGS (5)
  1. XARELTO [Suspect]
     Active Substance: RIVAROXABAN
     Indication: Product used for unknown indication
     Route: 048
     Dates: start: 202405
  2. Immunoglobulin [Concomitant]
     Indication: Product used for unknown indication
  3. METHYLPREDNISOLONE [Concomitant]
     Active Substance: METHYLPREDNISOLONE
     Indication: Product used for unknown indication
  4. BISULEPIN HYDROCHLORIDE [Concomitant]
     Active Substance: BISULEPIN HYDROCHLORIDE
     Indication: Product used for unknown indication
  5. DEXAMETHASONE [Concomitant]
     Active Substance: DEXAMETHASONE
     Indication: Product used for unknown indication

REACTIONS (13)
  - Sepsis [Fatal]
  - Organ failure [Fatal]
  - Pulmonary oedema [Fatal]
  - Atrial fibrillation [Unknown]
  - Toxic epidermal necrolysis [Unknown]
  - Hypertension [Unknown]
  - Nervous system disorder [Unknown]
  - Rash [Unknown]
  - Blister [Unknown]
  - Lip swelling [Unknown]
  - Swelling of eyelid [Unknown]
  - Oral infection [Unknown]
  - Skin disorder [Unknown]

NARRATIVE: CASE EVENT DATE: 20240921
